FAERS Safety Report 10401924 (Version 5)
Quarter: 2015Q2

REPORT INFORMATION
  Report Type: Report from Study
  Country: FR (occurrence: FR)
  Receive Date: 20140822
  Receipt Date: 20150413
  Transmission Date: 20150821
  Serious: Yes (Hospitalization)
  Sender: FDA-Public Use
  Company Number: FR-PFIZER INC-2014227479

PATIENT
  Age: 61 Year
  Sex: Male
  Weight: 63 kg

DRUGS (5)
  1. CRIZOTINIB [Suspect]
     Active Substance: CRIZOTINIB
     Dosage: 200 MG, 2X/DAY, CYCLIC
     Route: 048
     Dates: start: 20140509, end: 20140809
  2. CRIZOTINIB [Suspect]
     Active Substance: CRIZOTINIB
     Indication: NON-SMALL CELL LUNG CANCER
     Dosage: 200 MG, 2X/DAY, CYCLIC
     Route: 048
     Dates: start: 20140425, end: 20140501
  3. INNOHEP [Concomitant]
     Active Substance: TINZAPARIN SODIUM
     Indication: PULMONARY EMBOLISM
     Dosage: UNK
     Route: 058
     Dates: start: 20130506
  4. CRIZOTINIB [Suspect]
     Active Substance: CRIZOTINIB
     Dosage: 200 MG, SINGLE ADMINISTRATION (FIRST DOSE OF THE DAY), CYCLIC
     Route: 048
     Dates: start: 20140810, end: 20140810
  5. CRIZOTINIB [Suspect]
     Active Substance: CRIZOTINIB
     Dosage: 250 MG, DAILY, CYCLIC
     Route: 048
     Dates: start: 20140504, end: 20140508

REACTIONS (1)
  - Orthostatic hypotension [Not Recovered/Not Resolved]

NARRATIVE: CASE EVENT DATE: 20140616
